FAERS Safety Report 6600536-9 (Version None)
Quarter: 2010Q1

REPORT INFORMATION
  Report Type: 
  Country: None (occurrence: None)
  Receive Date: 20100224
  Receipt Date: 20100215
  Transmission Date: 20100710
  Serious: Yes (Other)
  Sender: FDA-Public Use
  Company Number: JP-MERCK-1002USA01826

PATIENT
  Age: 85 Year
  Sex: Male

DRUGS (1)
  1. PEPCID [Suspect]
     Indication: GASTRITIS
     Route: 048
     Dates: start: 19941101

REACTIONS (1)
  - GASTRITIS FUNGAL [None]
